FAERS Safety Report 11253701 (Version 1)
Quarter: 2015Q3

REPORT INFORMATION
  Report Type: Spontaneous
  Country: JP (occurrence: JP)
  Receive Date: 20150709
  Receipt Date: 20150709
  Transmission Date: 20151125
  Serious: Yes (Hospitalization, Other)
  Sender: FDA-Public Use
  Company Number: JP-TEVA-2015-JP-000716J

PATIENT
  Age: 71 Year
  Sex: Female
  Weight: 64 kg

DRUGS (7)
  1. OXALIPLATIN INTRAVENOUS INFUSION 200MG TEVA [Suspect]
     Active Substance: OXALIPLATIN
     Indication: COLON CANCER
     Route: 041
     Dates: start: 20150501, end: 20150519
  2. PROEMEND [Concomitant]
     Active Substance: FOSAPREPITANT
     Indication: PREMEDICATION
     Route: 065
     Dates: start: 20150501, end: 20150520
  3. XELODA [Concomitant]
     Active Substance: CAPECITABINE
  4. ALOXI [Concomitant]
     Active Substance: PALONOSETRON HYDROCHLORIDE
     Indication: PREMEDICATION
     Route: 041
     Dates: start: 20150409, end: 20150520
  5. OXALIPLATIN INTRAVENOUS INFUSION 200MG TEVA [Suspect]
     Active Substance: OXALIPLATIN
     Dosage: 160 MILLIGRAM DAILY;
     Route: 041
     Dates: start: 20150520
  6. AVASTIN [Concomitant]
     Active Substance: BEVACIZUMAB
     Indication: COLON CANCER
     Dosage: 480 MILLIGRAM DAILY;
     Route: 041
     Dates: start: 20150409, end: 20150520
  7. DECADRON [Concomitant]
     Active Substance: DEXAMETHASONE
     Indication: PREMEDICATION
     Route: 041
     Dates: start: 20150409, end: 20150520

REACTIONS (6)
  - Eyelid ptosis [Recovered/Resolved]
  - Dysphonia [Unknown]
  - Prerenal failure [Unknown]
  - Muscle spasms [Recovered/Resolved]
  - Dysphagia [Unknown]
  - Hypoaesthesia [Unknown]

NARRATIVE: CASE EVENT DATE: 20150501
